FAERS Safety Report 6300835-4 (Version None)
Quarter: 2009Q3

REPORT INFORMATION
  Report Type: 
  Country: None (occurrence: None)
  Receive Date: 20090807
  Receipt Date: 20090727
  Transmission Date: 20100115
  Serious: Yes (Hospitalization, Other)
  Sender: FDA-Public Use
  Company Number: ZA-PFIZER INC-2009246558

PATIENT

DRUGS (3)
  1. LIPITOR [Suspect]
     Route: 048
  2. ASPAVOR [Interacting]
     Dosage: 40 MG, 1X/DAY
     Route: 048
  3. PERINDOPRIL ERBUMINE/INDAPAMIDE HEMIHYDRATE [Concomitant]
     Route: 048

REACTIONS (5)
  - CHEST PAIN [None]
  - CHILLS [None]
  - PLATELET COUNT DECREASED [None]
  - RASH [None]
  - TONGUE DISCOLOURATION [None]
